FAERS Safety Report 17937129 (Version 1)
Quarter: 2020Q2

REPORT INFORMATION
  Report Type: Spontaneous
  Country: DE (occurrence: DE)
  Receive Date: 20200624
  Receipt Date: 20200624
  Transmission Date: 20200714
  Serious: Yes (Hospitalization)
  Sender: FDA-Public Use
  Company Number: DE-TEVA-2020-DE-1790472

PATIENT
  Age: 67 Year
  Sex: Male

DRUGS (9)
  1. AMIODARON [Suspect]
     Active Substance: AMIODARONE
     Dosage: 200 MILLIGRAM DAILY;  1-0-0-0
     Route: 048
  2. EMPAGLIFLOZIN [Concomitant]
     Active Substance: EMPAGLIFLOZIN
     Dosage: 10 MILLIGRAM DAILY; 1-0-0-0
     Route: 048
  3. APIXABAN [Concomitant]
     Active Substance: APIXABAN
     Dosage: 10 MILLIGRAM DAILY;  1-0-1-0
     Route: 048
  4. TIOTROPIUM BROMIDE [Concomitant]
     Active Substance: TIOTROPIUM BROMIDE
     Dosage: 18 MICROGRAM DAILY; 1-0-0-0,DOSAGE AEROSOL
     Route: 055
  5. AMLODIPINE/VALSARTAN [Concomitant]
     Active Substance: AMLODIPINE\VALSARTAN
     Dosage: 1 DOSAGE FORMS DAILY; 5|160 MG, 1-0-0-0
     Route: 048
  6. HYDROCHLOROTHIAZID [Concomitant]
     Active Substance: HYDROCHLOROTHIAZIDE
     Dosage: 12.5 MILLIGRAM DAILY;  1-0-0-0
     Route: 048
  7. METOPROLOL. [Suspect]
     Active Substance: METOPROLOL
     Dosage: 190 MILLIGRAM DAILY; 47.5 MG, 2-0-2-0
     Route: 048
  8. OMEPRAZOL [Concomitant]
     Active Substance: OMEPRAZOLE
     Dosage: 20 MILLIGRAM DAILY; 0-0-1-0
     Route: 048
  9. METFORMIN [Concomitant]
     Active Substance: METFORMIN HYDROCHLORIDE
     Dosage: 2000 MILLIGRAM DAILY; 1-0-1-0
     Route: 048

REACTIONS (4)
  - Dyspnoea [Unknown]
  - Cough [Unknown]
  - General physical health deterioration [Unknown]
  - Condition aggravated [Unknown]
